FAERS Safety Report 13806549 (Version 1)
Quarter: 2017Q3

REPORT INFORMATION
  Report Type: Report from Study
  Country: US (occurrence: US)
  Receive Date: 20170728
  Receipt Date: 20170728
  Transmission Date: 20171127
  Serious: No
  Sender: FDA-Public Use
  Company Number: US-AMGEN-USASL2017092620

PATIENT
  Age: 73 Year
  Sex: Female
  Weight: 63.49 kg

DRUGS (4)
  1. TOPROL XL [Concomitant]
     Active Substance: METOPROLOL SUCCINATE
     Indication: CORONARY ARTERY DISEASE
     Dosage: 100 MG, QD
  2. EFFIENT [Concomitant]
     Active Substance: PRASUGREL HYDROCHLORIDE
     Indication: CORONARY ARTERY DISEASE
     Dosage: 10 MG, QD
  3. REPATHA [Suspect]
     Active Substance: EVOLOCUMAB
     Indication: TYPE IIA HYPERLIPIDAEMIA
     Dosage: 140 MG, Q2WK
     Route: 065
     Dates: start: 201706
  4. LOSARTAN. [Concomitant]
     Active Substance: LOSARTAN
     Indication: HYPERTENSION

REACTIONS (3)
  - Fatigue [Unknown]
  - Muscle spasms [Unknown]
  - Muscular weakness [Unknown]

NARRATIVE: CASE EVENT DATE: 201706
